FAERS Safety Report 8640475 (Version 4)
Quarter: 2012Q4

REPORT INFORMATION
  Report Type: 
  Country: AU (occurrence: AU)
  Receive Date: 20120628
  Receipt Date: 20121018
  Transmission Date: 20130627
  Serious: Yes (Other)
  Sender: FDA-Public Use
  Company Number: AU-AMGEN-AUSSP2012038259

PATIENT
  Age: 64 Year
  Sex: Male

DRUGS (3)
  1. XGEVA [Suspect]
     Indication: METASTASES TO BONE
     Dosage: UNK UNK, one time dose
     Dates: start: 20120328, end: 20120328
  2. XGEVA [Suspect]
     Indication: PROSTATE CANCER METASTATIC
  3. ZOLEDRONIC ACID [Concomitant]
     Indication: METASTASES TO BONE
     Dosage: UNK
     Dates: start: 201204

REACTIONS (8)
  - Disease progression [Unknown]
  - Metastases to meninges [Unknown]
  - Bone pain [Unknown]
  - Arthralgia [Unknown]
  - Pelvic pain [Unknown]
  - Back pain [Unknown]
  - Weight decreased [Unknown]
  - Decreased appetite [Unknown]
